FAERS Safety Report 10731652 (Version 1)
Quarter: 2015Q1

REPORT INFORMATION
  Report Type: Not Available
  Country: DE (occurrence: DE)
  Receive Date: 20150123
  Receipt Date: 20150123
  Transmission Date: 20150721
  Serious: No
  Sender: FDA-Public Use
  Company Number: DE-LUPIN PHARMACEUTICALS INC.-2014-01845

PATIENT
  Age: 68 Year
  Sex: Male

DRUGS (1)
  1. IRBESARTAN-HORMOSAN 300 MG [Suspect]
     Active Substance: IRBESARTAN
     Indication: HYPERTENSION
     Route: 065

REACTIONS (2)
  - Muscle spasms [Unknown]
  - Intraocular pressure increased [Unknown]
